FAERS Safety Report 9961612 (Version 1)
Quarter: 2014Q1

REPORT INFORMATION
  Report Type: Report from Study
  Country: US (occurrence: US)
  Receive Date: 20140305
  Receipt Date: 20140305
  Transmission Date: 20141002
  Serious: No
  Sender: FDA-Public Use
  Company Number: US-ABBVIE-13P-163-1112766-00

PATIENT
  Age: 53 Year
  Sex: Male

DRUGS (7)
  1. HUMIRA [Suspect]
     Indication: CROHN^S DISEASE
     Dates: start: 20130429
  2. SIMVASTATIN [Concomitant]
     Indication: BLOOD CHOLESTEROL INCREASED
     Dosage: 40MG DAILY
  3. ZOLOFT [Concomitant]
     Indication: DEPRESSION
     Dosage: 25MG DAILY
  4. LAMICTAL [Concomitant]
     Indication: AFFECTIVE DISORDER
     Dosage: 100MG DAILY
  5. GLUMETZA [Concomitant]
     Indication: DIABETES MELLITUS
  6. LEVEMIR [Concomitant]
     Indication: DIABETES MELLITUS
     Dosage: EVERY MORNING
  7. 6MP [Concomitant]
     Indication: CROHN^S DISEASE
     Dosage: 50MG DAILY

REACTIONS (2)
  - Injection site pain [Recovered/Resolved]
  - Injection site pain [Recovered/Resolved]
